FAERS Safety Report 18313356 (Version 1)
Quarter: 2020Q3

REPORT INFORMATION
  Report Type: Spontaneous
  Country: US (occurrence: US)
  Receive Date: 20200925
  Receipt Date: 20200925
  Transmission Date: 20201103
  Serious: Yes (Hospitalization, Other)
  Sender: FDA-Public Use
  Company Number: US-PURDUE-USA-2020-0167771

PATIENT
  Sex: Male

DRUGS (1)
  1. OXYCONTIN [Suspect]
     Active Substance: OXYCODONE HYDROCHLORIDE
     Indication: BACK PAIN
     Dosage: UNK
     Route: 048
     Dates: start: 200306

REACTIONS (13)
  - Mental impairment [Unknown]
  - Erectile dysfunction [Unknown]
  - Emotional distress [Unknown]
  - Weight increased [Unknown]
  - Pain [Unknown]
  - Spinal operation [Unknown]
  - Nerve injury [Unknown]
  - Hospitalisation [Unknown]
  - Impaired work ability [Unknown]
  - Drug dependence [Unknown]
  - Malaise [Unknown]
  - Hypometabolism [Unknown]
  - Drug tolerance [Unknown]
